FAERS Safety Report 8399820-0 (Version None)
Quarter: 2012Q2

REPORT INFORMATION
  Report Type: 
  Country: None (occurrence: None)
  Receive Date: 20120531
  Receipt Date: 20120516
  Transmission Date: 20120825
  Serious: Yes (Hospitalization)
  Sender: FDA-Public Use
  Company Number: PHHY2012AR042790

PATIENT
  Sex: Male

DRUGS (1)
  1. CALCITONINA SANDOZ [Suspect]
     Indication: BLOOD CALCIUM INCREASED
     Dosage: 100 MG, UNK
     Dates: start: 20120511

REACTIONS (3)
  - LOSS OF CONTROL OF LEGS [None]
  - AGITATION [None]
  - INTERMITTENT CLAUDICATION [None]
